FAERS Safety Report 8207417-8 (Version None)
Quarter: 2012Q1

REPORT INFORMATION
  Report Type: 
  Country: None (occurrence: None)
  Receive Date: 20120312
  Receipt Date: 20120227
  Transmission Date: 20120608
  Serious: Yes (Hospitalization)
  Sender: FDA-Public Use
  Company Number: 2012-1117

PATIENT
  Sex: Female

DRUGS (4)
  1. BOTULINUM TOXIN TYPE A [Suspect]
     Indication: SKIN WRINKLING
     Dosage: 20 UNITS (20 UNITS, SINGLE
     Dates: start: 20120215, end: 20120215
  2. AZITROMAX (AZITHROMAX) [Concomitant]
  3. LEVOTHYROXINE SODIUM [Concomitant]
  4. APOCILIN (PHENOXYMETHYLPENICILLIN POTASSIUM) [Concomitant]

REACTIONS (7)
  - NAUSEA [None]
  - VIITH NERVE PARALYSIS [None]
  - SINUSITIS [None]
  - VOMITING [None]
  - DIZZINESS [None]
  - PHOTOPHOBIA [None]
  - HEADACHE [None]
